FAERS Safety Report 4518749-9 (Version None)
Quarter: 2004Q4

REPORT INFORMATION
  Report Type: 
  Country: None (occurrence: None)
  Receive Date: 20041201
  Receipt Date: 20041115
  Transmission Date: 20050328
  Serious: Yes (Other)
  Sender: FDA-Public Use
  Company Number: DSA_25386_2004

PATIENT
  Age: 37 Year
  Sex: Female
  Weight: 68.0396 kg

DRUGS (2)
  1. CARDIZEM LA [Suspect]
     Indication: HYPERTENSION
     Dosage: 240 MG QAM PO
     Route: 048
     Dates: start: 20041018
  2. HYDROCHLOROTHIAZIDE [Concomitant]

REACTIONS (2)
  - EYELID PTOSIS [None]
  - FACIAL PAIN [None]
